FAERS Safety Report 22087846 (Version 1)
Quarter: 2023Q1

REPORT INFORMATION
  Report Type: Spontaneous
  Country: CA (occurrence: CA)
  Receive Date: 20230313
  Receipt Date: 20230313
  Transmission Date: 20230417
  Serious: Yes (Life-Threatening, Hospitalization, Other)
  Sender: FDA-Public Use
  Company Number: CA-MLMSERVICE-20230215-4005696-1

PATIENT
  Sex: Female

DRUGS (6)
  1. LEVETIRACETAM [Suspect]
     Active Substance: LEVETIRACETAM
     Indication: Dyskinesia
     Dosage: 60 MG/KG IN TWO DOSES ?CUMULATIVE DOSE: 120 MG/KG
  2. LORAZEPAM [Suspect]
     Active Substance: LORAZEPAM
     Indication: Dyskinesia
     Dosage: 0.1 MG/KG IN TWO DOSES.?CUMULATIVE DOSE: 0.2 MG/KG
  3. PHENOBARBITAL [Suspect]
     Active Substance: PHENOBARBITAL
     Indication: Dyskinesia
     Dosage: 40 MG/KG IN TWO DOSES.?CUMULATIVE DOSE: 80 MG/KG
  4. ATROPINE [Concomitant]
     Active Substance: ATROPINE
     Indication: Endotracheal intubation
  5. SUCCINYLCHOLINE [Concomitant]
     Active Substance: SUCCINYLCHOLINE
     Indication: Endotracheal intubation
  6. FENTANYL [Concomitant]
     Active Substance: FENTANYL
     Indication: Endotracheal intubation

REACTIONS (3)
  - Apnoea [Unknown]
  - Respiratory failure [Unknown]
  - Off label use [Unknown]
